FAERS Safety Report 4464008-2 (Version None)
Quarter: 2004Q4

REPORT INFORMATION
  Report Type: 
  Country: None (occurrence: None)
  Receive Date: 20041001
  Receipt Date: 20040630
  Transmission Date: 20050328
  Serious: Yes (Hospitalization)
  Sender: FDA-Public Use
  Company Number: FR-ABBOTT-04P-056-0265646-00

PATIENT
  Sex: Male

DRUGS (9)
  1. DEPAKOTE [Suspect]
     Indication: ABNORMAL BEHAVIOUR
     Route: 048
     Dates: start: 20040322, end: 20040325
  2. DEPAKOTE [Suspect]
     Route: 048
     Dates: start: 20040401, end: 20040401
  3. DEPAKOTE [Suspect]
     Route: 048
     Dates: start: 20040401, end: 20040401
  4. DEPAKOTE [Suspect]
     Dosage: UP TO 1500 MILLIGRAM
     Dates: start: 20040315, end: 20040321
  5. DEPAKOTE [Suspect]
     Route: 048
     Dates: start: 20040401, end: 20040401
  6. OXAZEPAM [Interacting]
     Indication: ALCOHOL DETOXIFICATION
     Dosage: 200 TO 400 MILLIGRAM
     Route: 048
     Dates: start: 20040310
  7. OLANZAPINE [Interacting]
     Indication: ABNORMAL BEHAVIOUR
     Route: 048
     Dates: start: 20040315, end: 20040325
  8. CLOBAZAM [Concomitant]
     Indication: CONVULSION
     Route: 048
     Dates: start: 20040315, end: 20040324
  9. OXYBUTYNIN [Concomitant]
     Indication: URINARY TRACT DISORDER
     Route: 048
     Dates: start: 20040310

REACTIONS (7)
  - ABNORMAL BEHAVIOUR [None]
  - COMA [None]
  - DEPRESSED LEVEL OF CONSCIOUSNESS [None]
  - DIET REFUSAL [None]
  - DRUG INTERACTION [None]
  - HYPERAMMONAEMIA [None]
  - MEMORY IMPAIRMENT [None]
